FAERS Safety Report 6633301-7 (Version None)
Quarter: 2010Q1

REPORT INFORMATION
  Report Type: 
  Country: None (occurrence: None)
  Receive Date: 20100312
  Receipt Date: 20100115
  Transmission Date: 20100710
  Serious: No
  Sender: FDA-Public Use
  Company Number: US-ABBOTT-10P-163-0620577-00

PATIENT
  Sex: Female
  Weight: 63.56 kg

DRUGS (7)
  1. ERYPED [Suspect]
     Indication: IMPAIRED GASTRIC EMPTYING
  2. METOPROLOL TARTRATE [Concomitant]
     Indication: ARRHYTHMIA
  3. DIGOXIN [Concomitant]
     Indication: ARRHYTHMIA
  4. TRICOR [Concomitant]
     Indication: BLOOD CHOLESTEROL INCREASED
  5. FISH OIL [Concomitant]
     Indication: DRUG USE FOR UNKNOWN INDICATION
  6. ASPIRIN [Concomitant]
     Indication: DRUG USE FOR UNKNOWN INDICATION
  7. MULTI-VITAMIN [Concomitant]
     Indication: DRUG USE FOR UNKNOWN INDICATION

REACTIONS (1)
  - PRODUCT TASTE ABNORMAL [None]
